FAERS Safety Report 19916317 (Version 1)
Quarter: 2021Q4

REPORT INFORMATION
  Report Type: Spontaneous
  Country: US (occurrence: US)
  Receive Date: 20211004
  Receipt Date: 20211004
  Transmission Date: 20220303
  Serious: No
  Sender: FDA-Public Use
  Company Number: None

PATIENT
  Age: 19 Year
  Sex: Female
  Weight: 48.5 kg

DRUGS (1)
  1. BAMLANIVIMAB\ETESEVIMAB [Suspect]
     Active Substance: BAMLANIVIMAB\ETESEVIMAB
     Indication: COVID-19
     Dosage: ?          OTHER FREQUENCY:ONCE;
     Route: 041
     Dates: start: 20211004, end: 20211004

REACTIONS (3)
  - Flushing [None]
  - Dyspnoea [None]
  - Anxiety [None]
